FAERS Safety Report 16794747 (Version 1)
Quarter: 2019Q4

REPORT INFORMATION
  Report Type: Spontaneous
  Country: US (occurrence: US)
  Receive Date: 20190910
  Receipt Date: 20190910
  Transmission Date: 20200122
  Serious: Yes (Hospitalization, Other)
  Sender: FDA-Public Use
  Company Number: None

PATIENT
  Age: 6 Day
  Sex: Female
  Weight: 63.9 kg

DRUGS (5)
  1. LAMICTAL [Suspect]
     Active Substance: LAMOTRIGINE
     Indication: EMOTIONAL DISORDER
     Route: 048
     Dates: start: 20190307, end: 20190320
  2. VYVANSE [Concomitant]
     Active Substance: LISDEXAMFETAMINE DIMESYLATE
  3. WELLBUTRIN [Concomitant]
     Active Substance: BUPROPION HYDROCHLORIDE
  4. MULTIVITAMINS [Concomitant]
     Active Substance: VITAMINS
  5. [ZOLOFT [Concomitant]

REACTIONS (28)
  - Influenza like illness [None]
  - Hepatic enzyme increased [None]
  - Therapy cessation [None]
  - Disturbance in attention [None]
  - Product use issue [None]
  - Pain in extremity [None]
  - Vision blurred [None]
  - Fatigue [None]
  - Visual impairment [None]
  - Arthritis [None]
  - Haemophagocytic lymphohistiocytosis [None]
  - Inflammation [None]
  - Diarrhoea [None]
  - Meningitis bacterial [None]
  - Dysstasia [None]
  - Dysgeusia [None]
  - Neutrophil percentage increased [None]
  - Rash [None]
  - Eye pain [None]
  - Taste disorder [None]
  - Delusion [None]
  - Insomnia [None]
  - Pyrexia [None]
  - Muscle spasms [None]
  - Retinal vascular occlusion [None]
  - Alopecia [None]
  - Confusional state [None]
  - Amnesia [None]

NARRATIVE: CASE EVENT DATE: 20190320
